FAERS Safety Report 7222892-3 (Version None)
Quarter: 2011Q1

REPORT INFORMATION
  Report Type: 
  Country: None (occurrence: None)
  Receive Date: 20110106
  Receipt Date: 20110106
  Transmission Date: 20110831
  Serious: Yes (Hospitalization)
  Sender: FDA-Public Use
  Company Number: None

PATIENT
  Age: 82 Year
  Sex: Male
  Weight: 75 kg

DRUGS (7)
  1. M.V.I. [Concomitant]
  2. DEPAKOTE [Concomitant]
  3. ARICEPT [Concomitant]
  4. NAMENDA [Concomitant]
  5. COUMADIN [Suspect]
     Indication: ATRIAL FIBRILLATION
     Dosage: 5MG DAILY PO (CHRONIC)
     Route: 048
  6. VIT B12 [Concomitant]
  7. BENICAR HCT [Concomitant]

REACTIONS (5)
  - INTERNATIONAL NORMALISED RATIO INCREASED [None]
  - GASTRIC POLYPS [None]
  - COAGULOPATHY [None]
  - ANAEMIA [None]
  - GASTRIC HAEMORRHAGE [None]
